FAERS Safety Report 7208945-4 (Version None)
Quarter: 2010Q4

REPORT INFORMATION
  Report Type: 
  Country: None (occurrence: None)
  Receive Date: 20101222
  Receipt Date: 20101213
  Transmission Date: 20110411
  Serious: Yes (Other)
  Sender: FDA-Public Use
  Company Number: 2010SP064479

PATIENT
  Age: 21 Year
  Sex: Female

DRUGS (5)
  1. MERCILON (DESOGESTREL/ETHINYLESTRADIOL /00570801/) [Suspect]
     Indication: CONTRACEPTION
     Dosage: QD
  2. ALGIRON (CIMETROPIUM BROMIDE) [Suspect]
     Indication: PRODUCT USED FOR UNKNOWN INDICATION
     Dosage: 50 MG; QD
     Dates: start: 20101213
  3. RAMONS (LACTOBACILLUS RHAMNOSUS) [Suspect]
     Indication: PRODUCT USED FOR UNKNOWN INDICATION
     Dates: start: 20101213
  4. ALBIS (ALBIS) [Suspect]
     Indication: PRODUCT USED FOR UNKNOWN INDICATION
     Dates: start: 20101213
  5. MUCOSTA (REBAMIPIDE) [Suspect]
     Indication: PRODUCT USED FOR UNKNOWN INDICATION
     Dates: start: 20101213

REACTIONS (4)
  - DIARRHOEA [None]
  - DRUG INTERACTION [None]
  - ENTERITIS [None]
  - VOMITING [None]
